FAERS Safety Report 13980946 (Version 1)
Quarter: 2017Q3

REPORT INFORMATION
  Report Type: Spontaneous
  Country: US (occurrence: US)
  Receive Date: 20170918
  Receipt Date: 20170918
  Transmission Date: 20171128
  Serious: No
  Sender: FDA-Public Use
  Company Number: US-TEVA-739879ACC

PATIENT
  Age: 62 Year
  Sex: Male
  Weight: 95.24 kg

DRUGS (3)
  1. FEXOFENADINE 180 MG 571 [Suspect]
     Active Substance: FEXOFENADINE HYDROCHLORIDE
     Indication: URTICARIA
     Dosage: 180 MILLIGRAM DAILY;
     Route: 048
     Dates: start: 20170130, end: 20170202
  2. ZANTAC [Concomitant]
     Active Substance: RANITIDINE HYDROCHLORIDE
     Indication: URTICARIA
     Dates: start: 20170130, end: 20170202
  3. VITAMINS NOS [Concomitant]
     Active Substance: VITAMINS

REACTIONS (3)
  - Condition aggravated [Recovered/Resolved]
  - Urticaria [None]
  - Off label use [Unknown]

NARRATIVE: CASE EVENT DATE: 20170130
